FAERS Safety Report 4322293-1 (Version None)
Quarter: 2004Q1

REPORT INFORMATION
  Report Type: 
  Country: None (occurrence: None)
  Receive Date: 20040322
  Receipt Date: 20040322
  Transmission Date: 20041129
  Serious: Yes (Hospitalization)
  Sender: FDA-Public Use
  Company Number: None

PATIENT
  Age: 60 Year
  Sex: Male
  Weight: 102.5129 kg

DRUGS (7)
  1. D-MPH 5 MG -CELGENE [Suspect]
     Dosage: 15 MG BID PO
     Route: 048
     Dates: start: 20030821
  2. CELEBRAX [Concomitant]
  3. DILANTIN [Concomitant]
  4. DECADRON [Concomitant]
  5. . [Concomitant]
  6. IMIPRAZOLE [Concomitant]
  7. ZANTAC [Concomitant]

REACTIONS (4)
  - CONVULSION [None]
  - DEPRESSION [None]
  - DISEASE RECURRENCE [None]
  - MENTAL STATUS CHANGES [None]
